FAERS Safety Report 10310447 (Version 1)
Quarter: 2014Q3

REPORT INFORMATION
  Report Type: Spontaneous
  Country: US (occurrence: None)
  Receive Date: 20140716
  Receipt Date: 20140716
  Transmission Date: 20150326
  Serious: Yes (Disabling)
  Sender: FDA-Public Use
  Company Number: None

PATIENT
  Age: 34 Year
  Sex: Female

DRUGS (5)
  1. CENTRUM [Concomitant]
     Active Substance: VITAMINS
  2. FERROUS SULFATE [Concomitant]
     Active Substance: FERROUS SULFATE\FERROUS SULFATE, DRIED
  3. QSYMIA [Suspect]
     Active Substance: PHENTERMINE HYDROCHLORIDE\TOPIRAMATE
     Indication: WEIGHT CONTROL
     Dosage: 1 PILL, 1 PER DAY
     Route: 048
     Dates: start: 20140608, end: 20140628
  4. LISINOPRIL. [Concomitant]
     Active Substance: LISINOPRIL
  5. CRESTOR [Concomitant]
     Active Substance: ROSUVASTATIN CALCIUM

REACTIONS (7)
  - Insomnia [None]
  - Amnesia [None]
  - Paraesthesia [None]
  - Paranoia [None]
  - Depression [None]
  - Suicidal ideation [None]
  - Vision blurred [None]

NARRATIVE: CASE EVENT DATE: 20140628
